FAERS Safety Report 9216851 (Version 2)
Quarter: 2013Q2

REPORT INFORMATION
  Report Type: Spontaneous
  Country: US (occurrence: US)
  Receive Date: 20130408
  Receipt Date: 20130610
  Transmission Date: 20140414
  Serious: No
  Sender: FDA-Public Use
  Company Number: US-PFIZER INC-2013106969

PATIENT
  Age: 64 Year
  Sex: Male

DRUGS (5)
  1. GEODON [Suspect]
     Dosage: 40 MG, 2X/DAY
  2. GEODON [Suspect]
     Dosage: 60 MG, 2X/DAY
  3. GEODON [Suspect]
     Dosage: 80 MG, 2X/DAY
  4. GEODON [Suspect]
     Dosage: 60 MG, 2X/DAY
     Dates: start: 20130128
  5. GEODON [Suspect]
     Dosage: 40 MG, 2X/DAY
     Dates: start: 2013

REACTIONS (4)
  - Drug ineffective [Recovered/Resolved]
  - Malaise [Unknown]
  - Feeling of relaxation [Unknown]
  - Therapeutic response unexpected [Unknown]
